FAERS Safety Report 10184344 (Version 2)
Quarter: 2014Q2

REPORT INFORMATION
  Report Type: Spontaneous
  Country: US (occurrence: US)
  Receive Date: 20140520
  Receipt Date: 20140520
  Transmission Date: 20141212
  Serious: Yes (Other)
  Sender: FDA-Public Use
  Company Number: US-AMGEN-USASP2014020803

PATIENT
  Age: 0 Day
  Sex: Female
  Weight: 9.52 kg

DRUGS (1)
  1. ENBREL [Suspect]
     Indication: PRODUCT USED FOR UNKNOWN INDICATION
     Dosage: 50 MG, QWK
     Route: 063

REACTIONS (2)
  - Umbilical cord around neck [Unknown]
  - Umbilical cord abnormality [Unknown]
